FAERS Safety Report 9166991 (Version 1)
Quarter: 2013Q1

REPORT INFORMATION
  Report Type: Spontaneous
  Country: GB (occurrence: GB)
  Receive Date: 20130317
  Receipt Date: 20130317
  Transmission Date: 20140127
  Serious: Yes (Hospitalization)
  Sender: FDA-Public Use
  Company Number: GB-TEVA-390972ISR

PATIENT
  Age: 41 Year
  Sex: Female
  Weight: 79 kg

DRUGS (4)
  1. ERYTHROMYCIN [Suspect]
     Dates: start: 20130225
  2. CLARITHROMYCIN [Concomitant]
     Dates: start: 20130213, end: 20130213
  3. ERYTHROMYCIN ETHYLSUCCINATE [Concomitant]
     Dates: start: 20130213, end: 20130220
  4. VENTOLIN [Concomitant]
     Dates: start: 20130213

REACTIONS (1)
  - Pharyngeal oedema [Recovering/Resolving]
